FAERS Safety Report 21930427 (Version 1)
Quarter: 2023Q1

REPORT INFORMATION
  Report Type: Report from Study
  Country: US (occurrence: US)
  Receive Date: 20230131
  Receipt Date: 20230131
  Transmission Date: 20230417
  Serious: Yes (Other)
  Sender: FDA-Public Use
  Company Number: US-UCBSA-2023003807

PATIENT

DRUGS (1)
  1. LEVETIRACETAM [Suspect]
     Active Substance: LEVETIRACETAM
     Indication: Prophylaxis
     Dosage: 32.6 MILLIGRAM/KILOGRAM, ONCE DAILY (QD)

REACTIONS (1)
  - Seizure [Unknown]
